FAERS Safety Report 12338421 (Version 2)
Quarter: 2016Q4

REPORT INFORMATION
  Report Type: Report from Study
  Country: US (occurrence: US)
  Receive Date: 20160505
  Receipt Date: 20161007
  Transmission Date: 20170207
  Serious: No
  Sender: FDA-Public Use
  Company Number: GXBR2016US001219

PATIENT
  Age: 51 Year
  Sex: Female

DRUGS (1)
  1. GLATOPA [Suspect]
     Active Substance: GLATIRAMER ACETATE
     Indication: MULTIPLE SCLEROSIS
     Dosage: 20 MG, QD
     Route: 065
     Dates: start: 20160330

REACTIONS (9)
  - Chest pain [Recovered/Resolved]
  - Injection site pain [Not Recovered/Not Resolved]
  - Immediate post-injection reaction [Recovered/Resolved]
  - Flushing [Recovered/Resolved]
  - Nausea [Recovered/Resolved]
  - Injection site haemorrhage [Not Recovered/Not Resolved]
  - Hypoaesthesia oral [Recovered/Resolved]
  - Injection site urticaria [Not Recovered/Not Resolved]
  - Dysgeusia [Not Recovered/Not Resolved]

NARRATIVE: CASE EVENT DATE: 20160330
